FAERS Safety Report 11753367 (Version 2)
Quarter: 2020Q3

REPORT INFORMATION
  Report Type: Report from Study
  Country: GB (occurrence: GB)
  Receive Date: 20151119
  Receipt Date: 20151210
  Transmission Date: 20201104
  Serious: Yes (Other)
  Sender: FDA-Public Use
  Company Number: GB-ASTRAZENECA-2015SF09884

PATIENT
  Age: 62 Year
  Sex: Male
  Weight: 72.9 kg

DRUGS (3)
  1. SELUMETINIB. [Suspect]
     Active Substance: SELUMETINIB
     Indication: RECTAL CANCER METASTATIC
     Route: 048
     Dates: start: 20150810
  2. VANDETANIB. [Suspect]
     Active Substance: VANDETANIB
     Indication: RECTAL CANCER METASTATIC
     Route: 048
  3. VANDETANIB. [Suspect]
     Active Substance: VANDETANIB
     Indication: RECTAL CANCER METASTATIC
     Dosage: LOADING DOSE
     Route: 048
     Dates: start: 20150727

REACTIONS (1)
  - Retinal detachment [Recovered/Resolved]

NARRATIVE: CASE EVENT DATE: 20150814
